FAERS Safety Report 5165007-8 (Version None)
Quarter: 2006Q4

REPORT INFORMATION
  Report Type: 
  Country: None (occurrence: None)
  Receive Date: 20061205
  Receipt Date: 20061116
  Transmission Date: 20070319
  Serious: Yes (Hospitalization)
  Sender: FDA-Public Use
  Company Number: US-BOEHRINGER INGELHEIM PHARMACEUTICALS, INC.-2006-BP-13435BP

PATIENT
  Age: 79 Year
  Sex: Female

DRUGS (8)
  1. SPIRIVA [Suspect]
     Indication: CHRONIC OBSTRUCTIVE PULMONARY DISEASE
     Route: 055
     Dates: start: 20060301, end: 20061118
  2. OXYGEN [Concomitant]
     Indication: CHRONIC OBSTRUCTIVE PULMONARY DISEASE
  3. DUONEB [Concomitant]
     Indication: CHRONIC OBSTRUCTIVE PULMONARY DISEASE
  4. MUCINEX [Concomitant]
     Indication: PRODUCTIVE COUGH
  5. ASPIRIN [Concomitant]
     Indication: PROPHYLAXIS
  6. CARDIZEM [Concomitant]
     Indication: HYPERTENSION
  7. K SUPP [Concomitant]
     Indication: MINERAL SUPPLEMENTATION
  8. LASIX [Concomitant]
     Indication: HYPERTENSION

REACTIONS (7)
  - BLOOD PRESSURE FLUCTUATION [None]
  - FEELING ABNORMAL [None]
  - HEART RATE INCREASED [None]
  - NASAL CONGESTION [None]
  - OESOPHAGEAL DISORDER [None]
  - PNEUMONIA [None]
  - SWOLLEN TONGUE [None]
